FAERS Safety Report 8554875-5 (Version None)
Quarter: 2012Q3

REPORT INFORMATION
  Report Type: 
  Country: None (occurrence: None)
  Receive Date: 20120731
  Receipt Date: 20120727
  Transmission Date: 20120928
  Serious: Yes (Other)
  Sender: FDA-Public Use
  Company Number: US-PFIZER INC-2012182940

PATIENT
  Sex: Female
  Weight: 68.027 kg

DRUGS (2)
  1. PREMARIN [Suspect]
     Indication: HORMONE REPLACEMENT THERAPY
     Dosage: 0.625 MG, UNK
     Route: 048
     Dates: start: 19760101, end: 20120501
  2. ALLEGRA [Concomitant]
     Indication: HYPERSENSITIVITY
     Dosage: UNK

REACTIONS (5)
  - ASTHMA [None]
  - HEADACHE [None]
  - HOT FLUSH [None]
  - SLEEP DISORDER [None]
  - ACTIVITIES OF DAILY LIVING IMPAIRED [None]
